FAERS Safety Report 22109220 (Version 2)
Quarter: 2023Q2

REPORT INFORMATION
  Report Type: Spontaneous
  Country: US (occurrence: US)
  Receive Date: 20230317
  Receipt Date: 20230605
  Transmission Date: 20230721
  Serious: No
  Sender: FDA-Public Use
  Company Number: US-PHARMING-PHAUS2023000190

PATIENT

DRUGS (2)
  1. RUCONEST [Suspect]
     Active Substance: HUMAN C1-ESTERASE INHIBITOR
     Indication: Hereditary angioedema
     Dosage: UNK, TWICE WEEKLY AND PRN
     Route: 058
     Dates: start: 20180314
  2. RUCONEST [Suspect]
     Active Substance: HUMAN C1-ESTERASE INHIBITOR
     Dosage: 2100 IU, TWICE A WEEK AND AS NEEDED FOR BREAKTHROUGH ATTACKS
     Route: 058
     Dates: start: 20180316

REACTIONS (5)
  - Pain in extremity [Unknown]
  - Facial pain [Unknown]
  - Sensitivity to weather change [Unknown]
  - Intentional product use issue [Unknown]
  - Incorrect route of product administration [Unknown]
